FAERS Safety Report 5410204-7 (Version None)
Quarter: 2007Q3

REPORT INFORMATION
  Report Type: 
  Country: None (occurrence: None)
  Receive Date: 20070809
  Receipt Date: 20070807
  Transmission Date: 20080115
  Serious: Yes (Hospitalization, Other)
  Sender: FDA-Public Use
  Company Number: US-MERCK-0704USA04186

PATIENT
  Age: 80 Year
  Sex: Female

DRUGS (3)
  1. FOSAMAX [Suspect]
     Indication: OSTEOPOROSIS
     Route: 048
     Dates: start: 19990830, end: 20010601
  2. FOSAMAX [Suspect]
     Route: 048
     Dates: start: 20010701, end: 20020701
  3. FOSAMAX [Suspect]
     Route: 048
     Dates: start: 20020901, end: 20060101

REACTIONS (29)
  - ABSCESS [None]
  - ANGIOPATHY [None]
  - ANXIETY [None]
  - ARTERIAL OCCLUSIVE DISEASE [None]
  - CARDIOVASCULAR DISORDER [None]
  - CHEST PAIN [None]
  - CONTUSION [None]
  - DEPRESSION [None]
  - DISCOMFORT [None]
  - EMOTIONAL DISORDER [None]
  - ERYTHEMA [None]
  - FUNGAL INFECTION [None]
  - GASTROOESOPHAGEAL REFLUX DISEASE [None]
  - IMPAIRED HEALING [None]
  - NECK PAIN [None]
  - ORAL DISORDER [None]
  - ORAL INFECTION [None]
  - ORAL INTAKE REDUCED [None]
  - ORAL PAIN [None]
  - OSTEOMYELITIS [None]
  - OSTEONECROSIS [None]
  - PAIN [None]
  - PAIN IN JAW [None]
  - PURULENT DISCHARGE [None]
  - ROAD TRAFFIC ACCIDENT [None]
  - SPINAL COLUMN STENOSIS [None]
  - STOMATITIS [None]
  - TOOTH EXTRACTION [None]
  - WHIPLASH INJURY [None]
